FAERS Safety Report 6465499-8 (Version None)
Quarter: 2009Q4

REPORT INFORMATION
  Report Type: 
  Country: None (occurrence: None)
  Receive Date: 20091201
  Receipt Date: 20090821
  Transmission Date: 20100525
  Serious: No
  Sender: FDA-Public Use
  Company Number: US-AMGEN-KDL313084

PATIENT
  Sex: Female
  Weight: 77.6 kg

DRUGS (4)
  1. ENBREL [Suspect]
     Indication: RHEUMATOID ARTHRITIS
     Route: 058
     Dates: start: 20080916
  2. METHOTREXATE [Concomitant]
     Route: 048
     Dates: start: 20080730
  3. FOLIC ACID [Concomitant]
  4. VITAMIN D [Concomitant]

REACTIONS (8)
  - EAR PAIN [None]
  - GLOSSODYNIA [None]
  - INFECTION [None]
  - OROPHARYNGEAL PAIN [None]
  - SJOGREN'S SYNDROME [None]
  - SWOLLEN TONGUE [None]
  - TONGUE COATED [None]
  - TONGUE DISORDER [None]
